FAERS Safety Report 11684755 (Version 1)
Quarter: 2015Q4

REPORT INFORMATION
  Report Type: Spontaneous
  Country: US (occurrence: US)
  Receive Date: 20151029
  Receipt Date: 20151029
  Transmission Date: 20160304
  Serious: No
  Sender: FDA-Public Use
  Company Number: US-009507513-1510USA011837

PATIENT
  Age: 32 Year
  Sex: Female
  Weight: 65.76 kg

DRUGS (1)
  1. NUVARING [Suspect]
     Active Substance: ETHINYL ESTRADIOL\ETONOGESTREL
     Dosage: UNK, 4 WEEKS IN, BACK TO BACK
     Route: 067
     Dates: start: 201304

REACTIONS (2)
  - Inappropriate schedule of drug administration [Unknown]
  - Inappropriate schedule of drug administration [Unknown]

NARRATIVE: CASE EVENT DATE: 201304
